FAERS Safety Report 6814422-2 (Version None)
Quarter: 2010Q2

REPORT INFORMATION
  Report Type: 
  Country: None (occurrence: None)
  Receive Date: 20100629
  Receipt Date: 20100617
  Transmission Date: 20101027
  Serious: Yes (Hospitalization, Other)
  Sender: FDA-Public Use
  Company Number: 2010SP000925

PATIENT
  Age: 62 Year
  Sex: Female

DRUGS (8)
  1. LUNESTA [Suspect]
     Indication: INSOMNIA
     Dosage: 3MG; PRN; ORAL, 1.5 MG; PRN; ORAL, 2MG;PRN;ORAL, 1.5 MG: HS;ORAL, 1.5MG;HS;ORAL
     Route: 048
     Dates: end: 20100601
  2. LUNESTA [Suspect]
     Indication: INSOMNIA
     Dosage: 3MG; PRN; ORAL, 1.5 MG; PRN; ORAL, 2MG;PRN;ORAL, 1.5 MG: HS;ORAL, 1.5MG;HS;ORAL
     Route: 048
     Dates: start: 20100601
  3. MELATONIN [Concomitant]
  4. SIMVASTATIN [Concomitant]
  5. THYROID TAB [Concomitant]
  6. HARMONES AND RELATED AGENTS [Concomitant]
  7. VITAMINS [Concomitant]
  8. ACYCLOVIR [Concomitant]

REACTIONS (7)
  - APHASIA [None]
  - BILIARY CANCER METASTATIC [None]
  - CONFUSIONAL STATE [None]
  - DEPRESSION [None]
  - DRUG INEFFECTIVE [None]
  - LUNG NEOPLASM [None]
  - WRONG TECHNIQUE IN DRUG USAGE PROCESS [None]
